FAERS Safety Report 23538045 (Version 1)
Quarter: 2024Q1

REPORT INFORMATION
  Report Type: Spontaneous
  Country: PT (occurrence: PT)
  Receive Date: 20240219
  Receipt Date: 20240219
  Transmission Date: 20240410
  Serious: Yes (Other)
  Sender: FDA-Public Use
  Company Number: PT-PFIZER INC-PV202400015063

PATIENT
  Age: 37 Year
  Sex: Male

DRUGS (3)
  1. VORICONAZOLE [Suspect]
     Active Substance: VORICONAZOLE
     Indication: Bronchopulmonary aspergillosis
     Dosage: 12 MILLIGRAM/KILOGRAM, ONCE A DAY (ON DAY +8, WITH A LOADING DOSE OF 6 MG/KG OR 400 MG TWICE DAILY (
     Route: 065
  2. VORICONAZOLE [Suspect]
     Active Substance: VORICONAZOLE
     Indication: Haemoptysis
     Dosage: 8 MILLIGRAM/KILOGRAM, ONCE A DAY (MAINTENANCE DOSE OF 4 MG/KG OR 300 MG Q12H)
     Route: 065
  3. PIPERACILLIN AND TAZOBACTAM [Concomitant]
     Active Substance: PIPERACILLIN SODIUM\TAZOBACTAM SODIUM
     Indication: Pseudomonas infection
     Dosage: UNK, CYCLICAL (MAINTAINED FOR 21 DAYS, CYCLIC)
     Route: 065

REACTIONS (1)
  - Drug ineffective [Recovered/Resolved]
